FAERS Safety Report 4714316-2 (Version None)
Quarter: 2005Q3

REPORT INFORMATION
  Report Type: 
  Country: None (occurrence: None)
  Receive Date: 20050712
  Receipt Date: 20050707
  Transmission Date: 20060218
  Serious: Yes (Hospitalization, Disabling, Other)
  Sender: FDA-Public Use
  Company Number: THQ2005A00563

PATIENT
  Age: 47 Year
  Sex: Male

DRUGS (3)
  1. LANSOPRAZOLE [Suspect]
     Indication: HIATUS HERNIA
     Dosage: 1 TAB. (1 TAB., 1 IN 1 D) PER ORAL
     Route: 048
     Dates: start: 20001030, end: 20050315
  2. CHLORPHENAMINE MALEATE (TABLETS) [Concomitant]
  3. BETAMETHASONE [Concomitant]

REACTIONS (3)
  - BLOOD HOMOCYSTEINE INCREASED [None]
  - THROMBOSIS [None]
  - VITAMIN B12 DEFICIENCY [None]
